FAERS Safety Report 10056296 (Version 1)
Quarter: 2014Q2

REPORT INFORMATION
  Report Type: Spontaneous
  Country: US (occurrence: None)
  Receive Date: 20140401
  Receipt Date: 20140401
  Transmission Date: 20141212
  Serious: Yes (Other)
  Sender: FDA-Public Use
  Company Number: 001702009A

PATIENT
  Age: 46 Year
  Sex: Male

DRUGS (4)
  1. X-OUT WASH-IN TREATMENT [Suspect]
     Indication: ACNE
     Dosage: DERMAL
     Dates: start: 20140305
  2. EXFORGE [Concomitant]
  3. GLYBURIDE [Concomitant]
  4. JANUMET [Concomitant]

REACTIONS (4)
  - Pruritus generalised [None]
  - Pharyngeal oedema [None]
  - Lacrimation increased [None]
  - Drug hypersensitivity [None]
